FAERS Safety Report 9154427 (Version 1)
Quarter: 2013Q1

REPORT INFORMATION
  Report Type: Spontaneous
  Country: JP (occurrence: None)
  Receive Date: 20130307
  Receipt Date: 20130307
  Transmission Date: 20140127
  Serious: Yes (Death, Hospitalization)
  Sender: FDA-Public Use
  Company Number: PNIS20130002

PATIENT
  Sex: Female
  Weight: 45 kg

DRUGS (3)
  1. PREDNISOLONE [Suspect]
     Indication: GLOMERULONEPHRITIS
     Route: 048
  2. ASPIRIN (ACETYLSALICYLIC ACID) [Suspect]
     Indication: PRODUCT USED FOR UNKNOWN INDICATION
     Dosage: 1 IN 1 D
  3. HEPARIN [Suspect]
     Indication: HAEMODIALYSIS
     Dosage: 3 IN 1 WK,

REACTIONS (2)
  - Haemorrhage [None]
  - Shock haemorrhagic [None]
